FAERS Safety Report 21723453 (Version 1)
Quarter: 2022Q4

REPORT INFORMATION
  Report Type: Report from Study
  Country: CA (occurrence: CA)
  Receive Date: 20221213
  Receipt Date: 20221213
  Transmission Date: 20230112
  Serious: Yes (Hospitalization, Other)
  Sender: FDA-Public Use
  Company Number: CA-AMGEN-CANSL2022168879

PATIENT
  Age: 17 Year
  Sex: Female
  Weight: 55.3 kg

DRUGS (4)
  1. ADALIMUMAB [Suspect]
     Active Substance: ADALIMUMAB
     Indication: Crohn^s disease
     Dosage: 40 MILLIGRAM (40MG/0.8ML), QWK
     Route: 065
     Dates: start: 20211120
  2. CIPRO [Concomitant]
     Active Substance: CIPROFLOXACIN HYDROCHLORIDE
     Route: 065
  3. AMOXICILLIN\CLAVULANATE POTASSIUM [Concomitant]
     Active Substance: AMOXICILLIN\CLAVULANATE POTASSIUM
     Route: 065
  4. FLAGYL [Concomitant]
     Active Substance: METRONIDAZOLE\METRONIDAZOLE HYDROCHLORIDE
     Route: 065

REACTIONS (11)
  - Abscess [Unknown]
  - Neuropathy peripheral [Not Recovered/Not Resolved]
  - Haematochezia [Unknown]
  - Haemorrhage [Unknown]
  - Pruritus [Unknown]
  - Secretion discharge [Unknown]
  - Fistula [Unknown]
  - Abdominal discomfort [Unknown]
  - Nail bed disorder [Unknown]
  - Skin disorder [Unknown]
  - Off label use [Unknown]

NARRATIVE: CASE EVENT DATE: 20211120
